FAERS Safety Report 7788695-6 (Version None)
Quarter: 2011Q3

REPORT INFORMATION
  Report Type: 
  Country: None (occurrence: None)
  Receive Date: 20110930
  Receipt Date: 20110525
  Transmission Date: 20111222
  Serious: No
  Sender: FDA-Public Use
  Company Number: US-VIIV HEALTHCARE LIMITED-A0929914A

PATIENT
  Age: 19 Year
  Sex: Male
  Weight: 53.6 kg

DRUGS (3)
  1. NORVIR [Suspect]
     Indication: HIV INFECTION
     Route: 065
     Dates: start: 20110501, end: 20110501
  2. EPZICOM [Suspect]
     Indication: HIV INFECTION
     Route: 065
     Dates: start: 20110516, end: 20110501
  3. REYATAZ [Suspect]
     Indication: HIV INFECTION
     Route: 065
     Dates: start: 20110501, end: 20110501

REACTIONS (4)
  - VOMITING [None]
  - DYSPNOEA [None]
  - DIARRHOEA [None]
  - NAUSEA [None]
